FAERS Safety Report 23311148 (Version 2)
Quarter: 2024Q1

REPORT INFORMATION
  Report Type: Spontaneous
  Country: JP (occurrence: JP)
  Receive Date: 20231218
  Receipt Date: 20240123
  Transmission Date: 20240410
  Serious: Yes (Hospitalization)
  Sender: FDA-Public Use
  Company Number: JP-BIOGEN-2023BI01241072

PATIENT
  Age: 40 Year
  Sex: Male

DRUGS (6)
  1. TECFIDERA [Suspect]
     Active Substance: DIMETHYL FUMARATE
     Indication: Multiple sclerosis
     Route: 050
  2. TECFIDERA [Suspect]
     Active Substance: DIMETHYL FUMARATE
     Route: 050
  3. BACLOFEN [Concomitant]
     Active Substance: BACLOFEN
     Route: 050
  4. VALPROATE SODIUM [Concomitant]
     Active Substance: VALPROATE SODIUM
     Route: 050
  5. MAGNESIUM OXIDE [Concomitant]
     Active Substance: MAGNESIUM OXIDE
     Route: 050
  6. HERBALS [Concomitant]
     Active Substance: HERBALS
     Route: 050

REACTIONS (2)
  - COVID-19 [Not Recovered/Not Resolved]
  - Pneumonia bacterial [Unknown]

NARRATIVE: CASE EVENT DATE: 20230101
